FAERS Safety Report 11025584 (Version 1)
Quarter: 2015Q2

REPORT INFORMATION
  Report Type: Spontaneous
  Country: US (occurrence: None)
  Receive Date: 20150413
  Receipt Date: 20150413
  Transmission Date: 20150821
  Serious: No
  Sender: FDA-Public Use
  Company Number: None

PATIENT
  Age: 68 Year
  Sex: Female

DRUGS (16)
  1. ESTRADIOL. [Concomitant]
     Active Substance: ESTRADIOL
  2. CETIRIZINE [Concomitant]
     Active Substance: CETIRIZINE HYDROCHLORIDE
  3. MODAFINIL. [Concomitant]
     Active Substance: MODAFINIL
  4. AMPYRA [Suspect]
     Active Substance: DALFAMPRIDINE
     Indication: MULTIPLE SCLEROSIS
     Route: 048
     Dates: start: 201006
  5. LISINOPRIL. [Concomitant]
     Active Substance: LISINOPRIL
  6. HUMULIN NOS [Concomitant]
     Active Substance: INSULIN HUMAN
  7. BACLOFEN. [Concomitant]
     Active Substance: BACLOFEN
  8. FLUTICASONE [Concomitant]
     Active Substance: FLUTICASONE\FLUTICASONE PROPIONATE
  9. ETODOLAC. [Concomitant]
     Active Substance: ETODOLAC
  10. HYDROCODONE/APAP [Concomitant]
     Active Substance: ACETAMINOPHEN\HYDROCODONE
  11. SIMVASTATIN. [Concomitant]
     Active Substance: SIMVASTATIN
  12. HUMALOG [Concomitant]
     Active Substance: INSULIN LISPRO
  13. ASA [Concomitant]
     Active Substance: ASPIRIN
  14. ANASTROZOLE. [Concomitant]
     Active Substance: ANASTROZOLE
  15. OXYBUTYNIN [Concomitant]
     Active Substance: OXYBUTYNIN
  16. DIAZEPAM. [Concomitant]
     Active Substance: DIAZEPAM

REACTIONS (1)
  - Urine analysis abnormal [None]

NARRATIVE: CASE EVENT DATE: 20141114
